FAERS Safety Report 20744667 (Version 1)
Quarter: 2022Q2

REPORT INFORMATION
  Report Type: Spontaneous
  Country: US (occurrence: US)
  Receive Date: 20220425
  Receipt Date: 20220425
  Transmission Date: 20220720
  Serious: No
  Sender: FDA-Public Use
  Company Number: US-PFIZER INC-202101041245

PATIENT
  Age: 59 Year
  Sex: Male
  Weight: 102.06 kg

DRUGS (1)
  1. CHANTIX [Suspect]
     Active Substance: VARENICLINE TARTRATE
     Indication: Smoking cessation therapy
     Dosage: 1 MG, DAILY

REACTIONS (3)
  - Nausea [Unknown]
  - Abnormal dreams [Unknown]
  - Recalled product administered [Unknown]
